FAERS Safety Report 23904739 (Version 1)
Quarter: 2024Q2

REPORT INFORMATION
  Report Type: Spontaneous
  Country: US (occurrence: US)
  Receive Date: 20240527
  Receipt Date: 20240527
  Transmission Date: 20240716
  Serious: Yes (Other)
  Sender: FDA-Public Use
  Company Number: US-ABBVIE-5770445

PATIENT

DRUGS (12)
  1. HUMIRA [Suspect]
     Active Substance: ADALIMUMAB
     Indication: Product used for unknown indication
     Route: 058
     Dates: start: 2013, end: 2014
  2. HUMIRA [Suspect]
     Active Substance: ADALIMUMAB
     Route: 058
     Dates: start: 2015, end: 2023
  3. REMICADE [Concomitant]
     Active Substance: INFLIXIMAB
     Indication: Product used for unknown indication
     Dosage: ONLY 4 INFUSIONS
     Dates: start: 2013
  4. IMURAN [Concomitant]
     Active Substance: AZATHIOPRINE
     Indication: Product used for unknown indication
     Dates: start: 2013, end: 2015
  5. MESALAMINE [Concomitant]
     Active Substance: MESALAMINE
     Indication: Product used for unknown indication
     Dates: start: 2013, end: 2015
  6. MESALAMINE [Concomitant]
     Active Substance: MESALAMINE
     Indication: Product used for unknown indication
     Dates: start: 2023, end: 2024
  7. SIMPONI [Concomitant]
     Active Substance: GOLIMUMAB
     Indication: Product used for unknown indication
     Dosage: ONLY 3 MONTHS
     Dates: start: 2015
  8. METHOTREXATE [Concomitant]
     Active Substance: METHOTREXATE
     Indication: Product used for unknown indication
     Dates: start: 2023, end: 2024
  9. STELARA [Concomitant]
     Active Substance: USTEKINUMAB
     Indication: Product used for unknown indication
     Dosage: 5 MONTHS
     Dates: start: 2023, end: 2024
  10. VITAMIN D [Concomitant]
     Active Substance: VITAMIN D NOS
     Indication: Product used for unknown indication
  11. COLLAGEN [Concomitant]
     Active Substance: COLLAGEN
     Indication: Product used for unknown indication
  12. FOLIC ACID [Concomitant]
     Active Substance: FOLIC ACID
     Indication: Product used for unknown indication

REACTIONS (4)
  - Lupus-like syndrome [Unknown]
  - Hypoaesthesia [Unknown]
  - Feeling abnormal [Unknown]
  - Arthritis enteropathic [Unknown]

NARRATIVE: CASE EVENT DATE: 20230101
